FAERS Safety Report 14515535 (Version 2)
Quarter: 2018Q4

REPORT INFORMATION
  Report Type: Spontaneous
  Country: US (occurrence: US)
  Receive Date: 20180210
  Receipt Date: 20181228
  Transmission Date: 20190204
  Serious: Yes (Other)
  Sender: FDA-Public Use
  Company Number: US-JNJFOC-20180136261

PATIENT
  Sex: Male

DRUGS (2)
  1. RISPERDAL [Suspect]
     Active Substance: RISPERIDONE
     Indication: PRODUCT USED FOR UNKNOWN INDICATION
     Route: 048
  2. RISPERDAL [Suspect]
     Active Substance: RISPERIDONE
     Indication: ATTENTION DEFICIT/HYPERACTIVITY DISORDER
     Dosage: VARYING DOSES OF 0.5 TO 1 MG
     Route: 048
     Dates: start: 2006, end: 2009

REACTIONS (5)
  - Emotional distress [Unknown]
  - Gynaecomastia [Unknown]
  - Off label use [Unknown]
  - Product use in unapproved indication [Unknown]
  - Therapy cessation [Unknown]

NARRATIVE: CASE EVENT DATE: 2006
